FAERS Safety Report 4355402-9 (Version None)
Quarter: 2004Q2

REPORT INFORMATION
  Report Type: 
  Country: None (occurrence: None)
  Receive Date: 20040504
  Receipt Date: 20030814
  Transmission Date: 20050107
  Serious: Yes (Other)
  Sender: FDA-Public Use
  Company Number: 200303567

PATIENT
  Sex: Female

DRUGS (1)
  1. VERMOX [Suspect]

REACTIONS (6)
  - ABORTION INDUCED [None]
  - ASPHYXIATING THORACIC DYSTROPHY [None]
  - COMPLICATIONS OF MATERNAL EXPOSURE TO THERAPEUTIC DRUGS [None]
  - MATERNAL DRUGS AFFECTING FOETUS [None]
  - MULTIPLE CONGENITAL ABNORMALITIES [None]
  - PULMONARY HYPOPLASIA [None]
